FAERS Safety Report 17374013 (Version 1)
Quarter: 2020Q1

REPORT INFORMATION
  Report Type: Spontaneous
  Country: FR (occurrence: FR)
  Receive Date: 20200206
  Receipt Date: 20200206
  Transmission Date: 20200409
  Serious: Yes (Hospitalization, Other)
  Sender: FDA-Public Use
  Company Number: FR-AMGEN-FRANI2018142778

PATIENT
  Age: 53 Year
  Sex: Male
  Weight: 74 kg

DRUGS (2)
  1. VOTRIENT [Suspect]
     Active Substance: PAZOPANIB HYDROCHLORIDE
     Indication: RENAL CANCER METASTATIC
     Dosage: 800 MILLIGRAM, QD
     Route: 048
     Dates: start: 20171207, end: 20181119
  2. XGEVA [Suspect]
     Active Substance: DENOSUMAB
     Indication: METASTASES TO BONE
     Dosage: UNK
     Route: 065
     Dates: start: 201712, end: 20180515

REACTIONS (6)
  - Dyspnoea [Recovered/Resolved with Sequelae]
  - Osteonecrosis [Recovered/Resolved]
  - Rash erythematous [Recovered/Resolved]
  - Pleural effusion [Recovered/Resolved with Sequelae]
  - Dyspnoea [Recovered/Resolved with Sequelae]
  - Pleural effusion [Recovered/Resolved with Sequelae]

NARRATIVE: CASE EVENT DATE: 20180619
